FAERS Safety Report 10192658 (Version 1)
Quarter: 2014Q2

REPORT INFORMATION
  Report Type: Spontaneous
  Country: JP (occurrence: JP)
  Receive Date: 20140523
  Receipt Date: 20140523
  Transmission Date: 20141212
  Serious: Yes (Disabling)
  Sender: FDA-Public Use
  Company Number: JP-009507513-1405JPN011190

PATIENT
  Sex: Male

DRUGS (2)
  1. PEGINTRON POWDER FOR INJECTION 100MICROG [Suspect]
     Indication: CHRONIC HEPATITIS C
     Dosage: 100 MICROGRAM, QW
     Route: 058
     Dates: end: 201403
  2. REBETOL CAPSULES 200MG [Suspect]
     Indication: CHRONIC HEPATITIS C
     Dosage: DAILY DOSAGE UNKNOWN
     Route: 048
     Dates: end: 201403

REACTIONS (1)
  - Injection site ulcer [Not Recovered/Not Resolved]
